FAERS Safety Report 11145404 (Version 1)
Quarter: 2015Q2

REPORT INFORMATION
  Report Type: Spontaneous
  Country: ES (occurrence: ES)
  Receive Date: 20150528
  Receipt Date: 20150528
  Transmission Date: 20150821
  Serious: Yes (Other)
  Sender: FDA-Public Use
  Company Number: ES-ASTRAZENECA-2015SE51056

PATIENT
  Age: 48 Year
  Sex: Female

DRUGS (2)
  1. QUETIAPINE [Suspect]
     Active Substance: QUETIAPINE
     Indication: ANXIETY
     Route: 048
  2. BENZODIAZEPINE [Suspect]
     Active Substance: BENZODIAZEPINE

REACTIONS (4)
  - Cognitive disorder [Unknown]
  - Off label use [Unknown]
  - Drug abuse [Unknown]
  - Drug dependence [Unknown]
